APPROVED DRUG PRODUCT: MILOPHENE
Active Ingredient: CLOMIPHENE CITRATE
Strength: 50MG
Dosage Form/Route: TABLET;ORAL
Application: A072196 | Product #001 | TE Code: AB
Applicant: GRANATA BIO CORP
Approved: Dec 20, 1988 | RLD: No | RS: No | Type: RX